FAERS Safety Report 15319968 (Version 1)
Quarter: 2018Q3

REPORT INFORMATION
  Report Type: Spontaneous
  Country: US (occurrence: US)
  Receive Date: 20180820
  Receipt Date: 20180820
  Transmission Date: 20181010
  Serious: Yes (Hospitalization, Disabling)
  Sender: FDA-Public Use
  Company Number: None

PATIENT
  Age: 27 Year
  Sex: Female
  Weight: 107.95 kg

DRUGS (13)
  1. IBUPROFEN. [Concomitant]
     Active Substance: IBUPROFEN
  2. TOPIRAMATE. [Concomitant]
     Active Substance: TOPIRAMATE
  3. MIRENA [Suspect]
     Active Substance: LEVONORGESTREL
     Dates: start: 20150918, end: 20180629
  4. AMLODIPINE [Concomitant]
     Active Substance: AMLODIPINE BESYLATE
  5. BUTALB [Concomitant]
  6. HYDROXYZINE [Concomitant]
     Active Substance: HYDROXYZINE HYDROCHLORIDE
  7. SUPER B COMPLEX [Concomitant]
     Active Substance: CYANOCOBALAMIN\DEXPANTHENOL\NIACINAMIDE\PYRIDOXINE HYDROCHLORIDE\RIBOFLAVIN 5^-PHOSPHATE SODIUM\THIAMINE HYDROCHLORIDE\VITAMIN B COMPLEX
  8. CITALOPRAM [Concomitant]
     Active Substance: CITALOPRAM HYDROBROMIDE
  9. PANTOZAPONOLOL [Concomitant]
  10. SUMATRIPTAN. [Concomitant]
     Active Substance: SUMATRIPTAN
  11. FLUTICISONE [Concomitant]
  12. IRON SUPPLEMENT [Concomitant]
     Active Substance: IRON
  13. BIOTIN [Concomitant]
     Active Substance: BIOTIN

REACTIONS (21)
  - Uterine spasm [None]
  - Syncope [None]
  - Headache [None]
  - Depression [None]
  - Hair texture abnormal [None]
  - Blindness [None]
  - Loss of consciousness [None]
  - Head discomfort [None]
  - Idiopathic intracranial hypertension [None]
  - Anxiety [None]
  - Hypertension [None]
  - Migraine [None]
  - Intracranial pressure increased [None]
  - Palpitations [None]
  - Impaired driving ability [None]
  - Vaginal haemorrhage [None]
  - Alopecia [None]
  - Sciatic nerve neuropathy [None]
  - Weight increased [None]
  - Trichorrhexis [None]
  - Hypoaesthesia [None]
